FAERS Safety Report 9628958 (Version 1)
Quarter: 2013Q4

REPORT INFORMATION
  Report Type: Spontaneous
  Country: US (occurrence: US)
  Receive Date: 20131017
  Receipt Date: 20131017
  Transmission Date: 20140711
  Serious: No
  Sender: FDA-Public Use
  Company Number: US-PFIZER INC-2013293904

PATIENT
  Age: 54 Year
  Sex: Female
  Weight: 65 kg

DRUGS (5)
  1. PREMARIN [Suspect]
     Indication: HORMONE REPLACEMENT THERAPY
     Dosage: 1.25 MG, 1X/DAY
     Route: 048
     Dates: start: 2006
  2. PREMARIN [Suspect]
     Dosage: 0.9 MG, 1X/DAY
     Route: 048
  3. PREMARIN [Suspect]
     Dosage: 0.625 MG, 1X/DAY
     Route: 048
  4. OMEPRAZOLE [Concomitant]
     Indication: DYSPEPSIA
     Dosage: 20 MG, 1X/DAY
  5. METOPROLOL [Concomitant]
     Indication: HEART RATE IRREGULAR
     Dosage: 50 MG, 1X/DAY

REACTIONS (2)
  - Product quality issue [Not Recovered/Not Resolved]
  - Drug ineffective [Not Recovered/Not Resolved]
